FAERS Safety Report 12893697 (Version 2)
Quarter: 2016Q4

REPORT INFORMATION
  Report Type: Spontaneous
  Country: AU (occurrence: AU)
  Receive Date: 20161028
  Receipt Date: 20161107
  Transmission Date: 20170207
  Serious: Yes (Hospitalization, Other)
  Sender: FDA-Public Use
  Company Number: AU-GLAXOSMITHKLINE-AU2016GSK158833

PATIENT
  Sex: Male

DRUGS (1)
  1. DICLOFENAC [Suspect]
     Active Substance: DICLOFENAC
     Indication: BACK PAIN

REACTIONS (8)
  - Systemic mastocytosis [Unknown]
  - Pulseless electrical activity [Unknown]
  - Presyncope [Unknown]
  - Hypotension [Unknown]
  - Cardiac arrest [Unknown]
  - Dizziness [Unknown]
  - Loss of consciousness [Unknown]
  - Tryptase increased [Unknown]
